FAERS Safety Report 9558551 (Version 1)
Quarter: 2013Q3

REPORT INFORMATION
  Report Type: Spontaneous
  Country: CA (occurrence: CA)
  Receive Date: 20130926
  Receipt Date: 20130926
  Transmission Date: 20140515
  Serious: Yes (Other)
  Sender: FDA-Public Use
  Company Number: CA-009507513-1309CAN013022

PATIENT
  Age: 36 Year
  Sex: Female

DRUGS (1)
  1. MARVELON [Suspect]
     Indication: PRODUCT USED FOR UNKNOWN INDICATION
     Route: 065

REACTIONS (8)
  - Arthralgia [Unknown]
  - Dizziness [Unknown]
  - Dyspnoea [Unknown]
  - Erythema [Unknown]
  - Hypoaesthesia [Unknown]
  - Muscular weakness [Unknown]
  - Nausea [Unknown]
  - Pruritus [Unknown]
